FAERS Safety Report 20332886 (Version 1)
Quarter: 2022Q1

REPORT INFORMATION
  Report Type: Spontaneous
  Country: US (occurrence: US)
  Receive Date: 20220113
  Receipt Date: 20220113
  Transmission Date: 20220423
  Serious: Yes (Other)
  Sender: FDA-Public Use
  Company Number: US-CELGENE-USA-20220100891

PATIENT
  Age: 70 Year
  Sex: Female
  Weight: 93.8 kg

DRUGS (1)
  1. BREYANZI [Suspect]
     Active Substance: LISOCABTAGENE MARALEUCEL
     Indication: Diffuse large B-cell lymphoma
     Route: 041
     Dates: start: 20211101, end: 20211101

REACTIONS (9)
  - Immune effector cell-associated neurotoxicity syndrome [Unknown]
  - Incontinence [Unknown]
  - Hypervolaemia [Unknown]
  - Decreased appetite [Unknown]
  - Diarrhoea [Unknown]
  - Fatigue [Unknown]
  - Headache [Unknown]
  - Memory impairment [Unknown]
  - Nausea [Unknown]

NARRATIVE: CASE EVENT DATE: 20211102
